FAERS Safety Report 5731902-1 (Version None)
Quarter: 2008Q2

REPORT INFORMATION
  Report Type: 
  Country: None (occurrence: None)
  Receive Date: 20080506
  Receipt Date: 20080506
  Transmission Date: 20081010
  Serious: Yes (Other)
  Sender: FDA-Public Use
  Company Number: None

PATIENT
  Age: 91 Year
  Sex: Male

DRUGS (11)
  1. DIGOXIN [Suspect]
     Indication: ATRIAL FIBRILLATION
     Dosage: ONE DAILY PO
     Route: 048
     Dates: start: 20080115, end: 20080502
  2. TERAZOSIN HCL [Concomitant]
  3. FOSAMAX [Concomitant]
  4. NASONEX [Concomitant]
  5. FINASTERIDE [Concomitant]
  6. AMLODIPINE [Concomitant]
  7. HYDROCHLOROTHIAZIDE [Concomitant]
  8. FUROSEMIDE [Concomitant]
  9. KLOR-CON [Concomitant]
  10. LIPITOR [Concomitant]
  11. WARFARIN SODIUM [Concomitant]

REACTIONS (3)
  - CARDIAC FIBRILLATION [None]
  - HEART RATE INCREASED [None]
  - PHARMACEUTICAL PRODUCT COMPLAINT [None]
